FAERS Safety Report 17605708 (Version 1)
Quarter: 2020Q1

REPORT INFORMATION
  Report Type: Spontaneous
  Country: US (occurrence: US)
  Receive Date: 20200331
  Receipt Date: 20200331
  Transmission Date: 20200409
  Serious: No
  Sender: FDA-Public Use
  Company Number: US-GLAXOSMITHKLINE-US2020055530

PATIENT

DRUGS (1)
  1. NICORETTE WHITE ICE MINT [Suspect]
     Active Substance: NICOTINE
     Indication: SMOKING CESSATION THERAPY
     Dosage: UNK

REACTIONS (6)
  - Oropharyngeal pain [Unknown]
  - Nausea [Unknown]
  - Wrong technique in product usage process [Unknown]
  - Cough [Unknown]
  - Oropharyngeal discomfort [Unknown]
  - Hiccups [Unknown]
